FAERS Safety Report 4449070-5 (Version None)
Quarter: 2004Q3

REPORT INFORMATION
  Report Type: 
  Country: None (occurrence: None)
  Receive Date: 20040909
  Receipt Date: 20040820
  Transmission Date: 20050211
  Serious: Yes (Other)
  Sender: FDA-Public Use
  Company Number: USA040771693

PATIENT
  Age: 57 Year
  Sex: Female
  Weight: 70 kg

DRUGS (6)
  1. STRATTERA [Suspect]
     Dosage: 40 MG/ 1 DAY
     Dates: start: 20040601
  2. ALTOCOR [Concomitant]
  3. ELAVIL [Concomitant]
  4. ATIVAN [Concomitant]
  5. ESTRATEST H.S. [Concomitant]
  6. FOSAMAX [Concomitant]

REACTIONS (3)
  - HEPATITIS [None]
  - SELF-MEDICATION [None]
  - TREATMENT NONCOMPLIANCE [None]
